FAERS Safety Report 11420948 (Version 1)
Quarter: 2015Q3

REPORT INFORMATION
  Report Type: Spontaneous
  Country: JP (occurrence: JP)
  Receive Date: 20150826
  Receipt Date: 20150826
  Transmission Date: 20151125
  Serious: Yes (Other)
  Sender: FDA-Public Use
  Company Number: JP-JNJFOC-20150818492

PATIENT

DRUGS (3)
  1. 5-AMINOSALICYLIC ACID [Concomitant]
     Active Substance: AMINOSALICYLIC ACID
     Route: 065
  2. INFLIXIMAB, RECOMBINANT [Suspect]
     Active Substance: INFLIXIMAB
     Indication: COLITIS ULCERATIVE
     Dosage: 100MG/UNIT VIALS??INDUCTION DOSE AT AT WEEKS 0, 2 AND 6.
     Route: 042
  3. MERCAPTOPURINE. [Concomitant]
     Active Substance: MERCAPTOPURINE
     Route: 065

REACTIONS (6)
  - Drug ineffective [Unknown]
  - Drug effect incomplete [Unknown]
  - Proctocolectomy [Unknown]
  - Colectomy [Unknown]
  - Rectal haemorrhage [Unknown]
  - Colitis ulcerative [Unknown]
